FAERS Safety Report 9176036 (Version 1)
Quarter: 2013Q1

REPORT INFORMATION
  Report Type: Spontaneous
  Country: GB (occurrence: GB)
  Receive Date: 20130320
  Receipt Date: 20130320
  Transmission Date: 20140127
  Serious: Yes (Other)
  Sender: FDA-Public Use
  Company Number: GB-MYLANLABS-2013S1005544

PATIENT
  Age: 77 Year
  Sex: Male
  Weight: 85 kg

DRUGS (6)
  1. DOXAZOSIN [Suspect]
     Indication: HYPERTENSION
     Dates: start: 20130131, end: 20130208
  2. DOXAZOSIN [Suspect]
     Indication: HYPERTENSION
  3. ATENOLOL [Concomitant]
     Indication: HYPERTENSION
  4. ATENOLOL [Concomitant]
     Indication: PANIC ATTACK
  5. OMEPRAZOLE [Concomitant]
     Indication: GASTROOESOPHAGEAL REFLUX DISEASE
  6. RAMIPRIL [Concomitant]
     Indication: HYPERTENSION

REACTIONS (5)
  - Abdominal pain [Recovered/Resolved]
  - Headache [Recovered/Resolved]
  - Lethargy [Recovered/Resolved]
  - Hypotension [Recovered/Resolved]
  - Sleep disorder [Recovered/Resolved]
